FAERS Safety Report 4275698-1 (Version None)
Quarter: 2004Q1

REPORT INFORMATION
  Report Type: 
  Country: None (occurrence: None)
  Receive Date: 20040121
  Receipt Date: 20040121
  Transmission Date: 20041129
  Serious: Yes (Death)
  Sender: FDA-Public Use
  Company Number: None

PATIENT
  Age: 2 Year
  Sex: Female

DRUGS (1)
  1. TPN [Suspect]
     Dosage: INJECTABLE

REACTIONS (3)
  - BLOOD POTASSIUM INCREASED [None]
  - DRUG LEVEL INCREASED [None]
  - MEDICATION ERROR [None]
